FAERS Safety Report 17472448 (Version 1)
Quarter: 2020Q1

REPORT INFORMATION
  Report Type: Spontaneous
  Country: AR (occurrence: AR)
  Receive Date: 20200228
  Receipt Date: 20200228
  Transmission Date: 20200409
  Serious: Yes (Other)
  Sender: FDA-Public Use
  Company Number: NVSC2020AR053674

PATIENT
  Sex: Female

DRUGS (2)
  1. FEMARA [Suspect]
     Active Substance: LETROZOLE
     Indication: BREAST CANCER
     Dosage: 1 OF 2.5 MG, QD
     Route: 065
     Dates: start: 20160823, end: 2019
  2. FEMARA [Suspect]
     Active Substance: LETROZOLE
     Dosage: 1 OF 2.5 MG, QD
     Route: 065

REACTIONS (11)
  - Blood cholesterol increased [Unknown]
  - Dysstasia [Unknown]
  - Neuralgia [Unknown]
  - Vaginal disorder [Unknown]
  - Weight gain poor [Unknown]
  - Myalgia [Unknown]
  - Arthralgia [Unknown]
  - Headache [Unknown]
  - Diarrhoea [Unknown]
  - Chest pain [Unknown]
  - Pollakiuria [Unknown]
